FAERS Safety Report 5102320-4 (Version None)
Quarter: 2006Q3

REPORT INFORMATION
  Report Type: 
  Country: None (occurrence: None)
  Receive Date: 20060908
  Receipt Date: 20060901
  Transmission Date: 20061208
  Serious: Yes (Hospitalization)
  Sender: FDA-Public Use
  Company Number: 2006-02284

PATIENT
  Age: 53 Year
  Sex: Male

DRUGS (6)
  1. VELCADE [Suspect]
     Indication: MANTLE CELL LYMPHOMA
     Dosage: 1.30 MG/M2, INTRAVENOUS
     Route: 042
     Dates: start: 20060804, end: 20060807
  2. CYCLOPHOSPHAMIDE [Suspect]
     Indication: MANTLE CELL LYMPHOMA
     Dates: start: 20060804
  3. ADRIAMYCIN (DOXOURUBICIN) VIAL [Suspect]
     Indication: MANTLE CELL LYMPHOMA
     Dates: start: 20060804
  4. VINCRISTINE [Suspect]
     Indication: MANTLE CELL LYMPHOMA
     Dates: start: 20060804
  5. PREDNISONE [Suspect]
     Indication: MANTLE CELL LYMPHOMA
     Dates: start: 20060804
  6. RITUXIMAB (RITUXIMAB) SOLUTION [Suspect]
     Indication: MANTLE CELL LYMPHOMA
     Dates: start: 20060804

REACTIONS (1)
  - CHEST PAIN [None]
